FAERS Safety Report 4414669-9 (Version None)
Quarter: 2004Q3

REPORT INFORMATION
  Report Type: 
  Country: None (occurrence: None)
  Receive Date: 20040729
  Receipt Date: 20040716
  Transmission Date: 20050211
  Serious: Yes (Hospitalization)
  Sender: FDA-Public Use
  Company Number: US-JNJFOC-20040705161

PATIENT
  Age: 45 Year
  Sex: Male

DRUGS (1)
  1. REMICADE [Suspect]
     Indication: GRAFT VERSUS HOST DISEASE
     Dosage: INTRAVENOUS
     Route: 042
     Dates: start: 20040323

REACTIONS (2)
  - DIALYSIS [None]
  - ORGAN FAILURE [None]
